FAERS Safety Report 9805066 (Version 1)
Quarter: 2014Q1

REPORT INFORMATION
  Report Type: Spontaneous
  Country: US (occurrence: US)
  Receive Date: 20140109
  Receipt Date: 20140109
  Transmission Date: 20141002
  Serious: No
  Sender: FDA-Public Use
  Company Number: US-BIOGENIDEC-2013BI015266

PATIENT
  Sex: Female

DRUGS (3)
  1. AVONEX [Suspect]
     Indication: MULTIPLE SCLEROSIS
     Route: 030
     Dates: start: 19970123, end: 20130306
  2. AVONEX [Suspect]
     Indication: MULTIPLE SCLEROSIS
     Route: 030
     Dates: start: 20130313
  3. PREDNISONE [Concomitant]

REACTIONS (4)
  - Injection site haemorrhage [Recovered/Resolved]
  - Balance disorder [Unknown]
  - Weight increased [Recovered/Resolved]
  - Memory impairment [Not Recovered/Not Resolved]
